FAERS Safety Report 14092871 (Version 9)
Quarter: 2018Q3

REPORT INFORMATION
  Report Type: Spontaneous
  Country: DE (occurrence: DE)
  Receive Date: 20171016
  Receipt Date: 20180706
  Transmission Date: 20181010
  Serious: Yes (Life-Threatening, Hospitalization, Other)
  Sender: FDA-Public Use
  Company Number: DE-BRISTOL-MYERS SQUIBB COMPANY-BMS-2017-090990

PATIENT
  Age: 36 Year
  Sex: Female
  Weight: 50 kg

DRUGS (4)
  1. FRAGMIN [Suspect]
     Active Substance: DALTEPARIN SODIUM
     Indication: PULMONARY EMBOLISM
     Dosage: 50000 IU, UNK
     Route: 058
     Dates: start: 20170929
  2. FRAGMIN [Suspect]
     Active Substance: DALTEPARIN SODIUM
     Indication: SUICIDAL IDEATION
     Dosage: 50 IU, UNK
     Route: 058
  3. ELIQUIS [Suspect]
     Active Substance: APIXABAN
     Indication: PULMONARY EMBOLISM
     Dosage: 200 MG, UNK
     Route: 048
     Dates: start: 20170929
  4. ELIQUIS [Suspect]
     Active Substance: APIXABAN
     Indication: SUICIDAL IDEATION
     Route: 065

REACTIONS (9)
  - Suicidal ideation [Not Recovered/Not Resolved]
  - Wound [Not Recovered/Not Resolved]
  - Circulatory collapse [Not Recovered/Not Resolved]
  - Contraindicated product administered [Unknown]
  - Intentional self-injury [Not Recovered/Not Resolved]
  - Toxicity to various agents [Not Recovered/Not Resolved]
  - Haemoglobin decreased [Not Recovered/Not Resolved]
  - Intentional overdose [Not Recovered/Not Resolved]
  - Cardiac arrest [Not Recovered/Not Resolved]

NARRATIVE: CASE EVENT DATE: 20170929
